FAERS Safety Report 23744662 (Version 3)
Quarter: 2024Q3

REPORT INFORMATION
  Report Type: Spontaneous
  Country: US (occurrence: US)
  Receive Date: 20240415
  Receipt Date: 20240709
  Transmission Date: 20241017
  Serious: Yes (Hospitalization, Other)
  Sender: BRISTOL MYERS SQUIBB
  Company Number: US-BRISTOL-MYERS SQUIBB COMPANY-2024-057396

PATIENT
  Age: 68 Year
  Sex: Male

DRUGS (2)
  1. POMALYST [Suspect]
     Active Substance: POMALIDOMIDE
     Indication: Plasma cell myeloma
     Dosage: QD
     Route: 048
  2. POMALYST [Suspect]
     Active Substance: POMALIDOMIDE
     Dosage: 1 QD (EVERYDAY) FOR 21 DAYS ON THEN 7 DAYS OFF
     Route: 048

REACTIONS (7)
  - Abdominal pain upper [Unknown]
  - Angina pectoris [Unknown]
  - Head discomfort [Unknown]
  - Balance disorder [Unknown]
  - Disturbance in attention [Unknown]
  - Vertigo [Unknown]
  - Cognitive disorder [Unknown]

NARRATIVE: CASE EVENT DATE: 20240301
